FAERS Safety Report 15395176 (Version 7)
Quarter: 2022Q1

REPORT INFORMATION
  Report Type: Spontaneous
  Country: US (occurrence: US)
  Receive Date: 20180918
  Receipt Date: 20220222
  Transmission Date: 20220423
  Serious: No
  Sender: FDA-Public Use
  Company Number: US-PFIZER INC-2018370638

PATIENT
  Age: 60 Year
  Sex: Male
  Weight: 80.74 kg

DRUGS (3)
  1. LYRICA [Suspect]
     Active Substance: PREGABALIN
     Indication: Fibromyalgia
     Dosage: 100 MG, ONCE A DAY
     Route: 048
  2. LYRICA [Suspect]
     Active Substance: PREGABALIN
     Indication: Diabetic neuropathy
     Dosage: 100 MG, TWICE A DAY
     Route: 048
     Dates: start: 201808
  3. LYRICA [Suspect]
     Active Substance: PREGABALIN
     Dosage: 200 MG (2 CAPSULES OF 100 MG), ONCE A DAY
     Route: 048

REACTIONS (4)
  - Pain in extremity [Unknown]
  - Visual impairment [Unknown]
  - Hypoacusis [Unknown]
  - Intentional product use issue [Unknown]
